FAERS Safety Report 9227620 (Version 1)
Quarter: 2013Q2

REPORT INFORMATION
  Report Type: Spontaneous
  Country: US (occurrence: None)
  Receive Date: 20130411
  Receipt Date: 20130411
  Transmission Date: 20140414
  Serious: No
  Sender: FDA-Public Use
  Company Number: None

PATIENT
  Age: 74 Year
  Sex: Female

DRUGS (1)
  1. FORTEO [Suspect]
     Indication: OSTEOPOROSIS
     Dates: start: 20120214, end: 20120725

REACTIONS (4)
  - Nasopharyngitis [None]
  - Influenza [None]
  - Fungal infection [None]
  - Pseudohyperkalaemia [None]
